FAERS Safety Report 7447474-X (Version None)
Quarter: 2011Q2

REPORT INFORMATION
  Report Type: 
  Country: None (occurrence: None)
  Receive Date: 20110429
  Receipt Date: 20110422
  Transmission Date: 20111010
  Serious: Yes (Hospitalization)
  Sender: FDA-Public Use
  Company Number: IT-BAXTER-2011BH007616

PATIENT
  Age: 74 Year
  Sex: Male

DRUGS (2)
  1. DIANEAL [Suspect]
     Indication: PERITONEAL DIALYSIS
     Route: 033
     Dates: start: 20110311, end: 20110311
  2. DIANEAL [Suspect]
     Route: 033
     Dates: start: 20110311, end: 20110311

REACTIONS (2)
  - PERITONEAL EFFLUENT LEUKOCYTE COUNT INCREASED [None]
  - ABDOMINAL PAIN [None]
